FAERS Safety Report 9225201 (Version 2)
Quarter: 2013Q2

REPORT INFORMATION
  Report Type: Report from Study
  Country: US (occurrence: US)
  Receive Date: 20130411
  Receipt Date: 20130611
  Transmission Date: 20140414
  Serious: Yes (Other)
  Sender: FDA-Public Use
  Company Number: US-JNJFOC-20130401489

PATIENT
  Sex: Female

DRUGS (2)
  1. REMICADE [Suspect]
     Indication: PRODUCT USED FOR UNKNOWN INDICATION
     Route: 042
  2. KENALOG [Suspect]
     Indication: HYPERSENSITIVITY
     Route: 065

REACTIONS (2)
  - Hypersensitivity [Unknown]
  - Immune system disorder [Not Recovered/Not Resolved]
